FAERS Safety Report 6003630-9 (Version None)
Quarter: 2008Q4

REPORT INFORMATION
  Report Type: 
  Country: None (occurrence: None)
  Receive Date: 20081212
  Receipt Date: 20081212
  Transmission Date: 20090506
  Serious: Yes (Other)
  Sender: FDA-Public Use
  Company Number: None

PATIENT
  Age: 45 Year
  Sex: Male
  Weight: 80.7403 kg

DRUGS (1)
  1. SEPTRA DS [Suspect]
     Indication: SKIN IRRITATION
     Dosage: 1 TABLE 2X DAY PO, 2 DOSES
     Route: 048
     Dates: start: 20081210, end: 20081210

REACTIONS (3)
  - GENERALISED ERYTHEMA [None]
  - PRURITUS [None]
  - SKIN IRRITATION [None]
